FAERS Safety Report 21989913 (Version 5)
Quarter: 2023Q2

REPORT INFORMATION
  Report Type: Spontaneous
  Country: US (occurrence: US)
  Receive Date: 20230214
  Receipt Date: 20230425
  Transmission Date: 20230722
  Serious: No
  Sender: FDA-Public Use
  Company Number: US-PFIZER INC-202300061949

PATIENT
  Age: 13 Year
  Sex: Female
  Weight: 58.06 kg

DRUGS (1)
  1. GENOTROPIN [Suspect]
     Active Substance: SOMATROPIN
     Indication: Pituitary tumour
     Dosage: 2 MG (INJECTION 6 NIGHTS A WEEK)

REACTIONS (5)
  - Off label use [Unknown]
  - Device use issue [Unknown]
  - Device mechanical issue [Unknown]
  - Drug dose omission by device [Unknown]
  - Poor quality device used [Unknown]

NARRATIVE: CASE EVENT DATE: 20230205
